FAERS Safety Report 5801056-1 (Version None)
Quarter: 2008Q3

REPORT INFORMATION
  Report Type: 
  Country: None (occurrence: None)
  Receive Date: 20080704
  Receipt Date: 20080605
  Transmission Date: 20090109
  Serious: No
  Sender: FDA-Public Use
  Company Number: BR-JNJFOC-20080601923

PATIENT
  Age: 28 Year
  Sex: Male
  Weight: 125 kg

DRUGS (3)
  1. ULTRACET [Suspect]
     Indication: PAIN
     Dosage: AS NEEDED
     Route: 048
  2. MYLICON GOTAS [Suspect]
     Indication: FLATULENCE
     Route: 048
  3. PARIET [Suspect]
     Indication: PROMOTION OF WOUND HEALING
     Route: 048

REACTIONS (3)
  - INCORRECT DOSE ADMINISTERED [None]
  - PRURITUS [None]
  - RASH [None]
